FAERS Safety Report 16110727 (Version 1)
Quarter: 2019Q1

REPORT INFORMATION
  Report Type: Spontaneous
  Country: US (occurrence: US)
  Receive Date: 20190220
  Receipt Date: 20190220
  Transmission Date: 20190418
  Serious: Yes (Life-Threatening, Disabling)
  Sender: FDA-Public Use
  Company Number: None

PATIENT
  Age: 66 Year
  Sex: Female
  Weight: 106.65 kg

DRUGS (10)
  1. FUROSEMIDE. [Concomitant]
     Active Substance: FUROSEMIDE
  2. METFORMIN [Concomitant]
     Active Substance: METFORMIN HYDROCHLORIDE
  3. ATORVASTATIN [Concomitant]
     Active Substance: ATORVASTATIN
  4. VANCOMYCIN [Suspect]
     Active Substance: VANCOMYCIN
  5. POTASSIUM [Concomitant]
     Active Substance: POTASSIUM
  6. ELIQUIS [Concomitant]
     Active Substance: APIXABAN
  7. DILTIAZEM. [Concomitant]
     Active Substance: DILTIAZEM
  8. MULTI-VITAMIN [Concomitant]
     Active Substance: .ALPHA.-TOCOPHEROL ACETATE, DL-\ASCORBIC ACID\CYANOCOBALAMIN\FLUORIDE ION\FOLIC ACID\NIACIN\PYRIDOXINE\RIBOFLAVIN\THIAMINE\VITAMIN A\VITAMIN D
  9. DIGOXIN. [Concomitant]
     Active Substance: DIGOXIN
  10. QUINAPRIL. [Concomitant]
     Active Substance: QUINAPRIL

REACTIONS (5)
  - Blister [None]
  - Skin discolouration [None]
  - Drug hypersensitivity [None]
  - Peripheral swelling [None]
  - Post procedural complication [None]

NARRATIVE: CASE EVENT DATE: 20181116
